FAERS Safety Report 24378769 (Version 10)
Quarter: 2025Q2

REPORT INFORMATION
  Report Type: Spontaneous
  Country: AR (occurrence: AR)
  Receive Date: 20240930
  Receipt Date: 20250604
  Transmission Date: 20250716
  Serious: Yes (Life-Threatening, Hospitalization, Other)
  Sender: SANDOZ
  Company Number: AR-002147023-NVSC2024AR179904

PATIENT
  Age: 72 Year
  Sex: Female

DRUGS (20)
  1. FULVESTRANT [Suspect]
     Active Substance: FULVESTRANT
     Indication: Breast cancer metastatic
     Dosage: 1 DOSAGE FORM, QMO, INJECTION
     Route: 065
  2. FULVESTRANT [Suspect]
     Active Substance: FULVESTRANT
     Dosage: 2 DF, QMO (2 DOSAGE FORM, QMO (500MG 2 OF 250MG))
     Route: 065
  3. FULVESTRANT [Suspect]
     Active Substance: FULVESTRANT
     Route: 030
  4. FULVESTRANT [Suspect]
     Active Substance: FULVESTRANT
     Indication: Breast cancer metastatic
     Route: 065
     Dates: start: 20240714
  5. KISQALI [Suspect]
     Active Substance: RIBOCICLIB SUCCINATE
     Dosage: 3 DOSAGE FORM, QD (600 MG) (ONCE DAILY / 21 DAYS / 1 WEEK OFF)
     Route: 048
     Dates: start: 202407
  6. KISQALI [Suspect]
     Active Substance: RIBOCICLIB SUCCINATE
     Indication: Breast cancer metastatic
     Dosage: 600 MG, QD (3 OF 200MG)
     Route: 048
     Dates: start: 20240714
  7. KISQALI [Suspect]
     Active Substance: RIBOCICLIB SUCCINATE
     Route: 048
     Dates: start: 20240627
  8. KISQALI [Suspect]
     Active Substance: RIBOCICLIB SUCCINATE
     Route: 065
     Dates: start: 20240914
  9. LETROZOLE [Suspect]
     Active Substance: LETROZOLE
     Indication: Product used for unknown indication
     Route: 065
  10. ZOMETA [Suspect]
     Active Substance: ZOLEDRONIC ACID
     Dosage: 4 MG, QMO
     Route: 042
  11. ZOMETA [Suspect]
     Active Substance: ZOLEDRONIC ACID
     Indication: Breast cancer metastatic
     Route: 065
     Dates: start: 20240714
  12. ATORVASTATIN CALCIUM [Concomitant]
     Active Substance: ATORVASTATIN CALCIUM
     Indication: Blood cholesterol increased
     Dosage: 10 MG, QD (STATIN)
     Route: 065
  13. ATORVASTATIN CALCIUM [Concomitant]
     Active Substance: ATORVASTATIN CALCIUM
     Route: 065
  14. ASPIRIN [Concomitant]
     Active Substance: ASPIRIN
     Indication: Product used for unknown indication
     Route: 065
  15. Calcimax [Concomitant]
     Indication: Product used for unknown indication
     Dosage: 1 DF, QD
     Route: 065
  16. LEVOTHYROXINE [Concomitant]
     Active Substance: LEVOTHYROXINE
     Indication: Product used for unknown indication
     Dosage: 50 MG, QD
     Route: 065
     Dates: start: 20240714
  17. Oravil [Concomitant]
     Indication: Vitamin supplementation
     Dosage: 1 BOTTLE PER MONTH AS PRESCRIBED
     Route: 065
  18. Pantus [Concomitant]
     Indication: Gastrointestinal disorder
     Route: 065
  19. RIVOTRIL [Concomitant]
     Active Substance: CLONAZEPAM
     Indication: Restlessness
     Route: 060
  20. VITAMIN D3 [Concomitant]
     Active Substance: CHOLECALCIFEROL
     Indication: Product used for unknown indication
     Route: 065

REACTIONS (21)
  - Suicidal ideation [Unknown]
  - Emotional disorder [Unknown]
  - Cerebrovascular accident [Recovered/Resolved]
  - Mobility decreased [Recovered/Resolved]
  - Grip strength decreased [Recovered/Resolved]
  - Stress [Unknown]
  - Procedural pain [Unknown]
  - Pleural disorder [Unknown]
  - Central nervous system lesion [Unknown]
  - Balance disorder [Unknown]
  - Agitation [Unknown]
  - Sneezing [Unknown]
  - Dyspnoea [Unknown]
  - Pain [Unknown]
  - Alopecia [Recovering/Resolving]
  - Vertigo [Unknown]
  - Blood pressure increased [Unknown]
  - Fatigue [Unknown]
  - Anxiety [Unknown]
  - Fall [Unknown]
  - Incorrect dose administered [Unknown]

NARRATIVE: CASE EVENT DATE: 20240701
